FAERS Safety Report 7686454-6 (Version None)
Quarter: 2011Q3

REPORT INFORMATION
  Report Type: 
  Country: None (occurrence: None)
  Receive Date: 20110816
  Receipt Date: 20110802
  Transmission Date: 20111222
  Serious: Yes (Hospitalization)
  Sender: FDA-Public Use
  Company Number: FR-MYLANLABS-2011S1015862

PATIENT
  Age: 65 Year
  Sex: Male

DRUGS (12)
  1. AZILECT [Concomitant]
  2. TETRAZEPAM [Concomitant]
  3. ZYVOX [Suspect]
     Indication: INFECTION
     Dates: start: 20110329
  4. VANCOMYCIN [Suspect]
     Dates: start: 20110324
  5. GENTAMICIN SULFATE [Suspect]
     Indication: SEPSIS
     Dates: start: 20110324
  6. ALFUZOSIN HCL [Concomitant]
  7. PREVISCAN [Concomitant]
  8. VANCOMYCIN [Suspect]
     Dates: start: 20110323
  9. AMOXICILLIN TRIHYDRATE [Suspect]
     Dates: start: 20110325, end: 20110326
  10. BACTRIM [Suspect]
     Indication: INFECTION
     Dates: start: 20110329
  11. TRIVASTAL [Concomitant]
  12. TRAMADOL HCL [Concomitant]

REACTIONS (1)
  - ACUTE GENERALISED EXANTHEMATOUS PUSTULOSIS [None]
